FAERS Safety Report 6438942-8 (Version None)
Quarter: 2009Q4

REPORT INFORMATION
  Report Type: 
  Country: None (occurrence: None)
  Receive Date: 20091113
  Receipt Date: 20091109
  Transmission Date: 20100525
  Serious: Yes (Death, Other)
  Sender: FDA-Public Use
  Company Number: PE-ABBOTT-09P-127-0607420-00

PATIENT
  Age: 42 Year
  Sex: Male

DRUGS (13)
  1. KALETRA [Suspect]
     Indication: HIV INFECTION
     Dates: start: 20091009
  2. EFAVIRENZ [Suspect]
     Indication: HIV INFECTION
     Route: 048
     Dates: start: 20090623, end: 20091009
  3. DOXORUBICIN HCL [Suspect]
     Indication: KAPOSI'S SARCOMA
     Dates: start: 20090912
  4. EMTRICITABINE W/TENOFOVIR DISOPROXIL FUMARATE [Suspect]
     Indication: HIV INFECTION
     Dates: start: 20090623, end: 20091009
  5. ISONIAZID [Suspect]
     Indication: TUBERCULOSIS
     Dates: start: 20090610
  6. RIFAMPICIN [Suspect]
     Indication: TUBERCULOSIS
     Dates: start: 20090610
  7. PYRAZINAMIDE [Suspect]
     Indication: TUBERCULOSIS
     Dates: start: 20090610
  8. ETHAMBUTOL HYDROCHLORIDE [Suspect]
     Indication: TUBERCULOSIS
     Dates: start: 20090610
  9. ZIDOVUDINE [Suspect]
     Indication: HIV INFECTION
     Dates: start: 20091009
  10. LAMIVUDINE [Suspect]
     Indication: HIV INFECTION
     Dates: start: 20091009
  11. VINCRISTINE [Suspect]
     Indication: KAPOSI'S SARCOMA
     Dates: start: 20090813
  12. CLINDAMYCIN [Concomitant]
     Indication: TOXOPLASMOSIS PROPHYLAXIS
     Dates: end: 20091003
  13. TRIMETHOPRIM + SULFAMETHOXAZOLE [Concomitant]
     Indication: TOXOPLASMOSIS PROPHYLAXIS
     Dates: start: 20090902

REACTIONS (6)
  - BRAIN OEDEMA [None]
  - GENERAL PHYSICAL HEALTH DETERIORATION [None]
  - HIV INFECTION [None]
  - INTRACRANIAL PRESSURE INCREASED [None]
  - KAPOSI'S SARCOMA [None]
  - PNEUMONIA [None]
